FAERS Safety Report 5213013-7 (Version None)
Quarter: 2007Q1

REPORT INFORMATION
  Report Type: 
  Country: None (occurrence: None)
  Receive Date: 20070119
  Receipt Date: 20070117
  Transmission Date: 20070707
  Serious: Yes (Hospitalization)
  Sender: FDA-Public Use
  Company Number: 2006GB02214

PATIENT
  Age: 25212 Day
  Sex: Male

DRUGS (8)
  1. SYMBICORT [Suspect]
     Indication: ASTHMA
     Dosage: 400/12 UG, ONE PUFF, BID
     Route: 055
     Dates: start: 20061116
  2. SYMBICORT [Suspect]
     Route: 055
  3. SIMVASTATIN [Concomitant]
     Route: 048
  4. RAMIPRIL [Concomitant]
     Route: 048
  5. SPIRIVA [Concomitant]
  6. DILTIAZEM HCL [Concomitant]
  7. SERTRALINE [Concomitant]
  8. ASPIRIN [Concomitant]

REACTIONS (1)
  - CONVULSION [None]
